FAERS Safety Report 20355543 (Version 2)
Quarter: 2022Q1

REPORT INFORMATION
  Report Type: Report from Study
  Country: GB (occurrence: GB)
  Receive Date: 20220120
  Receipt Date: 20220201
  Transmission Date: 20220424
  Serious: Yes (Hospitalization, Other)
  Sender: FDA-Public Use
  Company Number: GB-NOVARTISPH-NVSC2022GB005832

PATIENT
  Sex: Female

DRUGS (1)
  1. ERELZI [Suspect]
     Active Substance: ETANERCEPT-SZZS
     Indication: Rheumatoid arthritis
     Dosage: 50 MG, QW
     Route: 065
     Dates: start: 20180530

REACTIONS (4)
  - Acute kidney injury [Unknown]
  - Product dose omission issue [Unknown]
  - Hypersensitivity [Unknown]
  - Discontinued product administered [Unknown]
